FAERS Safety Report 11427357 (Version 9)
Quarter: 2022Q3

REPORT INFORMATION
  Report Type: Spontaneous
  Country: US (occurrence: US)
  Receive Date: 20150827
  Receipt Date: 20220718
  Transmission Date: 20221026
  Serious: Yes (Other)
  Sender: FDA-Public Use
  Company Number: US-SA-2015SA073020

PATIENT
  Age: 40 Year
  Sex: Female
  Weight: 58.51 kg

DRUGS (8)
  1. FABRAZYME [Suspect]
     Active Substance: AGALSIDASE BETA
     Indication: Fabry^s disease
     Dosage: 0.99 MG/KG, QOW, (58.5 MG)
     Route: 041
     Dates: start: 20150501
  2. FABRAZYME [Suspect]
     Active Substance: AGALSIDASE BETA
     Dosage: 1.19 MG/KG, QOW,(70 MG)
     Route: 041
     Dates: start: 20200130, end: 2020
  3. FABRAZYME [Suspect]
     Active Substance: AGALSIDASE BETA
     Dosage: 1.19 MG/KG, QOW, (70 MG)
     Route: 041
     Dates: start: 2020, end: 20200622
  4. FABRAZYME [Suspect]
     Active Substance: AGALSIDASE BETA
     Dosage: 1.19 MG/KG, QOW
     Route: 041
     Dates: start: 2020
  5. FABRAZYME [Suspect]
     Active Substance: AGALSIDASE BETA
     Dosage: 80 MG, QOW, STRENGTH: 35 MG, 5 MG
     Route: 042
     Dates: start: 20200130
  6. FABRAZYME [Suspect]
     Active Substance: AGALSIDASE BETA
     Dosage: 75 MG, QOW
     Route: 041
     Dates: start: 20210130
  7. ACETAMINOPHEN [Concomitant]
     Active Substance: ACETAMINOPHEN
     Indication: Premedication
     Dosage: UNK
     Route: 065
  8. BENADRYL [Concomitant]
     Active Substance: DIPHENHYDRAMINE HYDROCHLORIDE
     Indication: Premedication
     Dosage: 25 MG,UNK
     Route: 042

REACTIONS (9)
  - Autism spectrum disorder [Unknown]
  - Migraine [Unknown]
  - Social anxiety disorder [Unknown]
  - Fear [Unknown]
  - Anxiety [Unknown]
  - Rash [Recovered/Resolved]
  - Pruritus [Recovered/Resolved]
  - Product dose omission issue [Unknown]
  - Product dose omission issue [Unknown]

NARRATIVE: CASE EVENT DATE: 20150501
